FAERS Safety Report 11079182 (Version 1)
Quarter: 2015Q2

REPORT INFORMATION
  Report Type: Report from Study
  Country: AT (occurrence: AT)
  Receive Date: 20150430
  Receipt Date: 20150430
  Transmission Date: 20150821
  Serious: Yes (Hospitalization)
  Sender: FDA-Public Use
  Company Number: AT-INCYTE CORPORATION-2015IN001763

PATIENT
  Age: 67 Year
  Sex: Male

DRUGS (4)
  1. NEUROBION [Concomitant]
     Active Substance: CYANOCOBALAMIN\PYRIDOXINE\THIAMINE
     Indication: POLYNEUROPATHY
     Dosage: 100 MG, QD
     Route: 048
     Dates: start: 20150309
  2. REQUIP [Concomitant]
     Active Substance: ROPINIROLE HYDROCHLORIDE
     Indication: POLYNEUROPATHY
     Dosage: 1 MG, QD
     Route: 048
     Dates: start: 201410
  3. INC424 [Suspect]
     Active Substance: RUXOLITINIB
     Indication: POLYCYTHAEMIA VERA
     Dosage: 5 MG, ONCE/SINGLE
     Route: 048
     Dates: start: 20150403
  4. SIFROL [Concomitant]
     Active Substance: PRAMIPEXOLE
     Indication: POLYNEUROPATHY
     Dosage: 0.1 MG, QD
     Route: 048
     Dates: start: 20150309

REACTIONS (1)
  - Ventricular extrasystoles [Recovered/Resolved]

NARRATIVE: CASE EVENT DATE: 20150417
